FAERS Safety Report 14684856 (Version 1)
Quarter: 2018Q1

REPORT INFORMATION
  Report Type: Report from Study
  Country: US (occurrence: US)
  Receive Date: 20180327
  Receipt Date: 20180327
  Transmission Date: 20180509
  Serious: No
  Sender: FDA-Public Use
  Company Number: US-CLOVIS ONCOLOGY-CLO-2018-000100

PATIENT
  Sex: Female

DRUGS (1)
  1. RUBRACA [Suspect]
     Active Substance: RUCAPARIB CAMSYLATE
     Indication: OVARIAN CANCER
     Dosage: 300MG IN THE MORNING, 600MG IN THE EVENING
     Route: 048
     Dates: start: 20180110, end: 2018

REACTIONS (12)
  - Abdominal pain [Unknown]
  - Gait disturbance [Unknown]
  - Mobility decreased [Unknown]
  - Arthritis [Unknown]
  - Carbohydrate antigen 125 increased [Unknown]
  - Blood creatinine increased [Unknown]
  - Constipation [Unknown]
  - Diarrhoea [Unknown]
  - Underdose [Unknown]
  - Nausea [Unknown]
  - Blood albumin decreased [Unknown]
  - Fatigue [Unknown]

NARRATIVE: CASE EVENT DATE: 2018
